FAERS Safety Report 5495372-3 (Version None)
Quarter: 2007Q4

REPORT INFORMATION
  Report Type: 
  Country: None (occurrence: None)
  Receive Date: 20071024
  Receipt Date: 20071012
  Transmission Date: 20080405
  Serious: Yes (Hospitalization, Other)
  Sender: FDA-Public Use
  Company Number: US-PFIZER INC-2007086975

PATIENT
  Sex: Male

DRUGS (1)
  1. SOLU-MEDROL [Suspect]

REACTIONS (4)
  - BACTERIAL CULTURE [None]
  - CHILLS [None]
  - HYPERHIDROSIS [None]
  - PYREXIA [None]
